FAERS Safety Report 8600437-0 (Version None)
Quarter: 2012Q3

REPORT INFORMATION
  Report Type: 
  Country: None (occurrence: None)
  Receive Date: 20120808
  Receipt Date: 20120808
  Transmission Date: 20120928
  Serious: Yes (Other)
  Sender: FDA-Public Use
  Company Number: None

PATIENT
  Age: 81 Year
  Sex: Female
  Weight: 68.2 kg

DRUGS (1)
  1. ZYCLARA [Suspect]
     Indication: SKIN CANCER
     Dosage: SMALL AMOUNT OF CREAM ON AREA 2 WKS ON/2 WKSOFF/RPT SKIN
     Dates: start: 20120314, end: 20120418

REACTIONS (7)
  - DRY SKIN [None]
  - PRURITUS [None]
  - RASH MACULAR [None]
  - SYSTEMIC LUPUS ERYTHEMATOSUS [None]
  - ERYTHEMA [None]
  - ALOPECIA [None]
  - ACNE [None]
